FAERS Safety Report 5047288-4 (Version None)
Quarter: 2006Q3

REPORT INFORMATION
  Report Type: 
  Country: None (occurrence: None)
  Receive Date: 20060703
  Receipt Date: 20060621
  Transmission Date: 20061208
  Serious: No
  Sender: FDA-Public Use
  Company Number: 12437034

PATIENT
  Sex: Female

DRUGS (1)
  1. SERZONE [Suspect]
     Dosage: ORAL
     Route: 048

REACTIONS (2)
  - ECZEMA [None]
  - HEPATITIS FULMINANT [None]
